FAERS Safety Report 13486849 (Version 3)
Quarter: 2017Q2

REPORT INFORMATION
  Report Type: Spontaneous
  Country: JP (occurrence: JP)
  Receive Date: 20170426
  Receipt Date: 20170530
  Transmission Date: 20170830
  Serious: Yes (Other)
  Sender: FDA-Public Use
  Company Number: JP-PFIZER INC-2017092838

PATIENT
  Age: 80 Year
  Sex: Female

DRUGS (1)
  1. TORISEL [Suspect]
     Active Substance: TEMSIROLIMUS
     Indication: RENAL CELL CARCINOMA
     Dosage: 25 MG, WEEKLY
     Route: 041
     Dates: start: 20170223, end: 20170511

REACTIONS (14)
  - Pneumonia aspiration [Unknown]
  - Pleural effusion [Unknown]
  - Condition aggravated [Unknown]
  - Pyrexia [Not Recovered/Not Resolved]
  - Ingrowing nail [Unknown]
  - Proteinuria [Unknown]
  - Disease recurrence [Unknown]
  - Dry skin [Unknown]
  - Blood potassium decreased [Not Recovered/Not Resolved]
  - Liver function test increased [Unknown]
  - Blood triglycerides increased [Unknown]
  - Blood alkaline phosphatase increased [Unknown]
  - Blood lactate dehydrogenase increased [Unknown]
  - Neoplasm progression [Unknown]

NARRATIVE: CASE EVENT DATE: 2017
